FAERS Safety Report 16838838 (Version 1)
Quarter: 2019Q3

REPORT INFORMATION
  Report Type: Spontaneous
  Country: US (occurrence: US)
  Receive Date: 20190731
  Receipt Date: 20190731
  Transmission Date: 20191005
  Serious: No
  Sender: FDA-Public Use
  Company Number: None

PATIENT

DRUGS (2)
  1. NALOXONE HCL [Suspect]
     Active Substance: NALOXONE HYDROCHLORIDE
     Dosage: ?          OTHER ROUTE:SINGLE DOSE VIAL?
  2. VERAPAMIL HCL [Suspect]
     Active Substance: VERAPAMIL HYDROCHLORIDE
     Dosage: ?          OTHER ROUTE:SINGLE DOSE VIAL?

REACTIONS (3)
  - Wrong product stored [None]
  - Product selection error [None]
  - Product appearance confusion [None]
